FAERS Safety Report 11326048 (Version 1)
Quarter: 2015Q3

REPORT INFORMATION
  Report Type: Spontaneous
  Country: US (occurrence: US)
  Receive Date: 20150731
  Receipt Date: 20150731
  Transmission Date: 20151125
  Serious: No
  Sender: FDA-Public Use
  Company Number: US-ROCHE-1421545

PATIENT
  Age: 57 Year
  Sex: Male
  Weight: 83.99 kg

DRUGS (3)
  1. RIBASPHERE RIBAPAK [Suspect]
     Active Substance: RIBAVIRIN
     Indication: HEPATITIS C
     Route: 048
     Dates: start: 20140425
  2. PEGASYS [Suspect]
     Active Substance: PEGINTERFERON ALFA-2A
     Indication: HEPATITIS C
     Route: 058
     Dates: start: 20140425
  3. SOVALDI [Suspect]
     Active Substance: SOFOSBUVIR
     Indication: HEPATITIS C
     Route: 048
     Dates: start: 20140425

REACTIONS (4)
  - Influenza like illness [Unknown]
  - Pain [Recovered/Resolved]
  - Nasal discomfort [Recovering/Resolving]
  - Oral pain [Recovered/Resolved]

NARRATIVE: CASE EVENT DATE: 20140425
